FAERS Safety Report 23814303 (Version 1)
Quarter: 2024Q2

REPORT INFORMATION
  Report Type: Report from Study
  Country: CN (occurrence: CN)
  Receive Date: 20240503
  Receipt Date: 20240503
  Transmission Date: 20240715
  Serious: Yes (Other)
  Sender: FDA-Public Use
  Company Number: CN-SUN PHARMACEUTICAL INDUSTRIES LTD-2024R1-444446

PATIENT

DRUGS (3)
  1. DEXAMETHASONE [Suspect]
     Active Substance: DEXAMETHASONE
     Indication: Chemotherapy
     Dosage: 6 MILLIGRAM/SQ. METER, DAILY, IV OR ORALLY (DAY 1-5) (ONCE EVERY 3 WEEKS FOR 8 COURSES)
     Route: 065
  2. CYTARABINE [Suspect]
     Active Substance: CYTARABINE
     Indication: Chemotherapy
     Dosage: 100 MILLIGRAM/SQ. METER, DAILY (DAY 1-5) (ONCE EVERY 3 WEEKS FOR 8 COURSES)
     Route: 041
  3. VINDESINE [Suspect]
     Active Substance: VINDESINE
     Indication: Chemotherapy
     Dosage: 3 MILLIGRAM/SQ. METER, DAILY (DAY 1) (ONCE EVERY 3 WEEKS FOR 8 COURSES)
     Route: 040

REACTIONS (1)
  - Disease recurrence [Unknown]
